FAERS Safety Report 19179550 (Version 1)
Quarter: 2021Q2

REPORT INFORMATION
  Report Type: Spontaneous
  Country: US (occurrence: US)
  Receive Date: 20210423
  Receipt Date: 20210423
  Transmission Date: 20210717
  Serious: Yes (Other)
  Sender: FDA-Public Use
  Company Number: None

PATIENT
  Age: 49 Year
  Sex: Male
  Weight: 100.35 kg

DRUGS (1)
  1. KRYSTEXXA [Suspect]
     Active Substance: PEGLOTICASE
     Indication: GOUT
     Dosage: ?          OTHER FREQUENCY:EVERY 2 WEEKS;OTHER ROUTE:INTRAVENOUS INFUSION?
     Route: 042
     Dates: start: 20210308, end: 20210423

REACTIONS (9)
  - Chest discomfort [None]
  - Nasal congestion [None]
  - Back pain [None]
  - Urticaria [None]
  - Nausea [None]
  - Dyspnoea [None]
  - Pain in extremity [None]
  - Swollen tongue [None]
  - Flushing [None]

NARRATIVE: CASE EVENT DATE: 20210423
